FAERS Safety Report 8579827-0 (Version None)
Quarter: 2012Q3

REPORT INFORMATION
  Report Type: 
  Country: None (occurrence: None)
  Receive Date: 20120808
  Receipt Date: 20120731
  Transmission Date: 20120928
  Serious: Yes (Other)
  Sender: FDA-Public Use
  Company Number: JP-VERTEX PHARMACEUTICALS INC.-AE-2012-011507

PATIENT
  Age: 73 Year
  Sex: Male

DRUGS (5)
  1. OLOPATADINE HCL [Concomitant]
     Route: 048
     Dates: start: 20120205
  2. TELAVIC [Suspect]
     Route: 048
     Dates: start: 20120215
  3. TELAVIC [Suspect]
     Indication: HEPATITIS C
     Route: 048
     Dates: start: 20120130, end: 20120204
  4. RIBAVIRIN [Concomitant]
     Indication: HEPATITIS C
     Route: 048
     Dates: start: 20120130
  5. PEGINTERFERON ALFA-2B [Concomitant]
     Indication: HEPATITIS C
     Route: 058
     Dates: start: 20120130

REACTIONS (1)
  - NEUTROPHIL COUNT DECREASED [None]
